FAERS Safety Report 10466499 (Version 1)
Quarter: 2014Q3

REPORT INFORMATION
  Report Type: Spontaneous
  Country: US (occurrence: None)
  Receive Date: 20140919
  Receipt Date: 20140919
  Transmission Date: 20150326
  Serious: Yes (Disabling, Other)
  Sender: FDA-Public Use
  Company Number: None

PATIENT
  Age: 85 Year
  Sex: Male
  Weight: 56.25 kg

DRUGS (1)
  1. VALTREX [Suspect]
     Active Substance: VALACYCLOVIR HYDROCHLORIDE
     Indication: HERPES ZOSTER
     Dosage: T.I.D---B.I.D
     Route: 048
     Dates: start: 20140518, end: 20140620

REACTIONS (14)
  - Anxiety [None]
  - Rectal haemorrhage [None]
  - Mental status changes [None]
  - Nuclear magnetic resonance imaging brain abnormal [None]
  - Confusional state [None]
  - Balance disorder [None]
  - Disorientation [None]
  - Dyskinesia [None]
  - Muscle twitching [None]
  - Memory impairment [None]
  - Amnesia [None]
  - Neurological symptom [None]
  - Abdominal pain [None]
  - Cerebral disorder [None]

NARRATIVE: CASE EVENT DATE: 20140518
